FAERS Safety Report 5088055-5 (Version None)
Quarter: 2006Q3

REPORT INFORMATION
  Report Type: 
  Country: None (occurrence: None)
  Receive Date: 20060727
  Receipt Date: 20060427
  Transmission Date: 20061208
  Serious: Yes (Other)
  Sender: FDA-Public Use
  Company Number: 2006034281

PATIENT
  Sex: Female

DRUGS (1)
  1. LYRICA [Suspect]
     Indication: DIABETIC NEUROPATHY
     Dosage: 75 MG (75 MG, 1 IN 1 D)

REACTIONS (2)
  - OEDEMA PERIPHERAL [None]
  - PALPITATIONS [None]
